FAERS Safety Report 18996635 (Version 1)
Quarter: 2021Q1

REPORT INFORMATION
  Report Type: Spontaneous
  Country: IN (occurrence: IN)
  Receive Date: 20210311
  Receipt Date: 20210311
  Transmission Date: 20210420
  Serious: Yes (Death, Life-Threatening, Hospitalization, Other)
  Sender: FDA-Public Use
  Company Number: IN-TILLOMED LABORATORIES LTD.-2021-EPL-000755

PATIENT
  Age: 53 Year
  Sex: Male

DRUGS (3)
  1. MYCOPHENOLATE MOFETIL. [Suspect]
     Active Substance: MYCOPHENOLATE MOFETIL
     Indication: IMMUNOSUPPRESSANT DRUG THERAPY
     Dosage: UNK
     Dates: start: 201712, end: 201803
  2. THYMOGLOBULIN [Suspect]
     Active Substance: LAPINE T-LYMPHOCYTE IMMUNE GLOBULIN
     Indication: IMMUNOSUPPRESSION
     Dosage: UNK
     Dates: start: 2017, end: 2017
  3. VINGRAF [Suspect]
     Active Substance: TACROLIMUS
     Indication: IMMUNOSUPPRESSANT DRUG THERAPY
     Dosage: UNK
     Dates: start: 2017, end: 201803

REACTIONS (14)
  - Pericardial effusion [Fatal]
  - Brain abscess [Fatal]
  - Central nervous system fungal infection [Fatal]
  - Acinetobacter infection [Fatal]
  - Mucormycosis [Fatal]
  - Cardiac arrest [Fatal]
  - Escherichia infection [Fatal]
  - Pneumonia [Fatal]
  - Aspergillus infection [Fatal]
  - Pulmonary cavitation [Fatal]
  - Respiratory distress [Fatal]
  - Burkholderia cepacia complex infection [Fatal]
  - Pneumopericardium [Fatal]
  - Sepsis [Fatal]

NARRATIVE: CASE EVENT DATE: 2018
